FAERS Safety Report 5674202-0 (Version None)
Quarter: 2008Q1

REPORT INFORMATION
  Report Type: 
  Country: None (occurrence: None)
  Receive Date: 20080320
  Receipt Date: 20080317
  Transmission Date: 20080703
  Serious: Yes (Hospitalization)
  Sender: FDA-Public Use
  Company Number: PHBS2008GT03396

PATIENT
  Age: 31 Year
  Sex: Male

DRUGS (2)
  1. TEGRETOL [Suspect]
     Indication: PETIT MAL EPILEPSY
     Dosage: 200 MG, Q12H
     Route: 048
     Dates: start: 19880101
  2. PHENOBARBITAL TAB [Concomitant]
     Dosage: 100 MG, Q12H
     Route: 048

REACTIONS (11)
  - AMOEBIC DYSENTERY [None]
  - CONJUNCTIVAL HYPERAEMIA [None]
  - COUGH [None]
  - DIARRHOEA [None]
  - HYPOKALAEMIA [None]
  - HYPONATRAEMIA [None]
  - LEUKOPLAKIA ORAL [None]
  - ONYCHOMYCOSIS [None]
  - PRURITUS [None]
  - PYREXIA [None]
  - SWELLING [None]
